FAERS Safety Report 17730750 (Version 1)
Quarter: 2020Q2

REPORT INFORMATION
  Report Type: Spontaneous
  Country: DE (occurrence: DE)
  Receive Date: 20200430
  Receipt Date: 20200430
  Transmission Date: 20200714
  Serious: Yes (Other)
  Sender: FDA-Public Use
  Company Number: DE-ABBVIE-20K-062-3323664-00

PATIENT
  Age: 34 Year
  Sex: Female

DRUGS (23)
  1. VENCLYXTO [Suspect]
     Active Substance: VENETOCLAX
     Indication: ACUTE MYELOID LEUKAEMIA
     Route: 048
     Dates: start: 20200206, end: 20200206
  2. CYTARABIN [Concomitant]
     Active Substance: CYTARABINE
     Indication: PRODUCT USED FOR UNKNOWN INDICATION
  3. ACIC [Concomitant]
     Active Substance: ACYCLOVIR
     Indication: PRODUCT USED FOR UNKNOWN INDICATION
     Dates: start: 20200209, end: 20200222
  4. CEFTAZIDINA [Concomitant]
     Indication: PRODUCT USED FOR UNKNOWN INDICATION
     Dosage: 2 BOTTLE
     Dates: start: 20200125, end: 20200125
  5. CLEXANE [Concomitant]
     Active Substance: ENOXAPARIN SODIUM
     Dosage: 40MG/0.4ML
     Dates: start: 20200201, end: 20200218
  6. CEFTAZIDINA [Concomitant]
     Dosage: 3 BOTTLE
     Dates: start: 20200126, end: 20200126
  7. FOLVERLAN [Concomitant]
     Active Substance: FOLIC ACID
     Indication: PRODUCT USED FOR UNKNOWN INDICATION
     Dates: start: 20200109, end: 20200222
  8. CLEXANE [Concomitant]
     Active Substance: ENOXAPARIN SODIUM
     Indication: PRODUCT USED FOR UNKNOWN INDICATION
     Dosage: 40MG/0.4ML
     Dates: start: 20200109, end: 20200122
  9. UCCH POTASSIUM CHLORIDE [Concomitant]
     Dates: start: 20200204, end: 20200204
  10. UCCH POTASSIUM CHLORIDE [Concomitant]
     Dates: start: 20200208, end: 20200208
  11. AMBISONE [Concomitant]
     Active Substance: AMPHOTERICIN B
     Indication: PRODUCT USED FOR UNKNOWN INDICATION
     Dosage: 4 BOTTLE
     Dates: start: 20200201, end: 20200222
  12. KALINOR RETARD P [Concomitant]
     Active Substance: POTASSIUM CHLORIDE
     Dates: start: 20200212, end: 20200212
  13. CEFTAZIDINA [Concomitant]
     Dosage: 3 BOTTLE
     Dates: start: 20200116, end: 20200119
  14. AZACITIDINE. [Concomitant]
     Active Substance: AZACITIDINE
     Indication: ACUTE MYELOID LEUKAEMIA
  15. MITOXANTRONE [Concomitant]
     Active Substance: MITOXANTRONE HYDROCHLORIDE
     Indication: PRODUCT USED FOR UNKNOWN INDICATION
  16. KALINOR RETARD P [Concomitant]
     Active Substance: POTASSIUM CHLORIDE
     Indication: PRODUCT USED FOR UNKNOWN INDICATION
     Dates: start: 20200118, end: 20200118
  17. KALINOR RETARD P [Concomitant]
     Active Substance: POTASSIUM CHLORIDE
     Dates: start: 20200123, end: 20200123
  18. VENCLYXTO [Suspect]
     Active Substance: VENETOCLAX
     Route: 048
     Dates: start: 20200207, end: 20200207
  19. UCCH POTASSIUM CHLORIDE [Concomitant]
     Dates: start: 20200131, end: 20200131
  20. UCCH POTASSIUM CHLORIDE [Concomitant]
     Dates: start: 20200209, end: 20200209
  21. VENCLYXTO [Suspect]
     Active Substance: VENETOCLAX
     Route: 048
     Dates: start: 20200208, end: 20200222
  22. UCCH POTASSIUM CHLORIDE [Concomitant]
     Indication: PRODUCT USED FOR UNKNOWN INDICATION
     Dosage: 40MG/40ML
     Dates: start: 20200125, end: 20200125
  23. CEFTAZIDINA [Concomitant]
     Dosage: 2 BOTTLE
     Dates: start: 20200220, end: 20200220

REACTIONS (6)
  - Live birth [Unknown]
  - Premature delivery [Recovered/Resolved]
  - Maternal exposure during pregnancy [Unknown]
  - Neutropenia [Unknown]
  - Off label use [Unknown]
  - Pyrexia [Unknown]

NARRATIVE: CASE EVENT DATE: 20200206
